FAERS Safety Report 4614151-X (Version None)
Quarter: 2005Q1

REPORT INFORMATION
  Report Type: 
  Country: None (occurrence: None)
  Receive Date: 20050315
  Receipt Date: 20050228
  Transmission Date: 20050727
  Serious: Yes (Hospitalization)
  Sender: FDA-Public Use
  Company Number: 2005UW03321

PATIENT
  Age: 49 Year
  Sex: Female

DRUGS (6)
  1. CRESTOR [Suspect]
     Indication: DYSLIPIDAEMIA
     Dosage: 10 MG PO
     Route: 048
     Dates: start: 20050111, end: 20050126
  2. GLUCOPHAGE [Concomitant]
  3. UNIRETIC [Concomitant]
  4. PAXIL [Concomitant]
  5. PREMARIN [Concomitant]
  6. LIPITOR [Concomitant]

REACTIONS (4)
  - CHEST PAIN [None]
  - FIBROMYALGIA [None]
  - MYOCARDIAL INFARCTION [None]
  - RHABDOMYOLYSIS [None]
